FAERS Safety Report 12906350 (Version 1)
Quarter: 2016Q4

REPORT INFORMATION
  Report Type: Spontaneous
  Country: US (occurrence: US)
  Receive Date: 20161102
  Receipt Date: 20161102
  Transmission Date: 20170207
  Serious: Yes (Hospitalization)
  Sender: FDA-Public Use
  Company Number: None

PATIENT
  Age: 4 Year
  Sex: Female
  Weight: 29 kg

DRUGS (4)
  1. DEXAMETHASONE. [Suspect]
     Active Substance: DEXAMETHASONE
     Dates: end: 20161015
  2. VINCRISTINE SULFATE. [Suspect]
     Active Substance: VINCRISTINE SULFATE
     Dates: end: 20161011
  3. MERCAPTOPURINE. [Suspect]
     Active Substance: MERCAPTOPURINE
     Dates: end: 20161022
  4. METHOTREXATE. [Suspect]
     Active Substance: METHOTREXATE
     Dates: end: 20161023

REACTIONS (17)
  - Heart rate increased [None]
  - Lactic acidosis [None]
  - Hepatic encephalopathy [None]
  - Confusional state [None]
  - Mental status changes [None]
  - Metabolic acidosis [None]
  - Histiocytosis haematophagic [None]
  - Neuropathy peripheral [None]
  - Acute hepatic failure [None]
  - Gastrointestinal haemorrhage [None]
  - Hepatic steatosis [None]
  - Gallbladder enlargement [None]
  - Vomiting [None]
  - Aggression [None]
  - Septic shock [None]
  - Hypothermia [None]
  - Lethargy [None]

NARRATIVE: CASE EVENT DATE: 20161024
